FAERS Safety Report 18573684 (Version 1)
Quarter: 2020Q4

REPORT INFORMATION
  Report Type: Spontaneous
  Country: GB (occurrence: GB)
  Receive Date: 20201203
  Receipt Date: 20201203
  Transmission Date: 20210114
  Serious: Yes (Life-Threatening, Hospitalization, Other)
  Sender: FDA-Public Use
  Company Number: GB-SUN PHARMACEUTICAL INDUSTRIES LTD-2020RR-269305

PATIENT
  Age: 44 Year
  Sex: Female
  Weight: 70 kg

DRUGS (8)
  1. QUININE SULFATE. [Concomitant]
     Active Substance: QUININE SULFATE
     Indication: PAIN
     Dosage: DOSE: 600 MG ()
     Route: 065
     Dates: start: 20041025
  2. OLANZAPINE. [Suspect]
     Active Substance: OLANZAPINE
     Indication: PRODUCT USED FOR UNKNOWN INDICATION
     Dosage: DOSE: 10MG ()
     Route: 048
     Dates: start: 20010101
  3. PROMAZINE [Concomitant]
     Active Substance: PROMAZINE
     Indication: DEPRESSION
     Dosage: DOSE: 100MG ()
     Route: 065
     Dates: start: 20010101
  4. DOSULEPIN HYDROCHLORIDE [Concomitant]
     Active Substance: DOTHIEPIN HYDROCHLORIDE
     Indication: DEPRESSION
     Dosage: DOSE: 225MG ()
     Route: 065
     Dates: start: 20010101
  5. OLANZAPINE. [Suspect]
     Active Substance: OLANZAPINE
     Dosage: 10 MILLIGRAM, UNK
     Route: 065
     Dates: start: 2002, end: 20041031
  6. ZOPICLONE [Concomitant]
     Active Substance: ZOPICLONE
     Indication: DEPRESSION
     Dosage: DOSE: 22.5 MG ()
     Route: 065
     Dates: start: 20010101
  7. DIAZEPAM. [Concomitant]
     Active Substance: DIAZEPAM
     Indication: DEPRESSION
     Dosage: DOSE: 20 MG ()
     Route: 065
     Dates: start: 20000101
  8. AMOXICILLIN. [Concomitant]
     Active Substance: AMOXICILLIN
     Indication: UPPER RESPIRATORY TRACT INFECTION
     Dosage: DOSE: 500MG ()
     Route: 065
     Dates: start: 20041025

REACTIONS (8)
  - Hepatic necrosis [Not Recovered/Not Resolved]
  - Congestive cardiomyopathy [Not Recovered/Not Resolved]
  - Blood creatine phosphokinase increased [Not Recovered/Not Resolved]
  - Hepatic failure [Not Recovered/Not Resolved]
  - Multiple organ dysfunction syndrome [Not Recovered/Not Resolved]
  - Aspartate aminotransferase increased [Unknown]
  - Cardiogenic shock [Not Recovered/Not Resolved]
  - Rhabdomyolysis [Unknown]

NARRATIVE: CASE EVENT DATE: 20041031
